FAERS Safety Report 6206162-8 (Version None)
Quarter: 2009Q2

REPORT INFORMATION
  Report Type: 
  Country: None (occurrence: None)
  Receive Date: 20090528
  Receipt Date: 20080819
  Transmission Date: 20091009
  Serious: Yes (Hospitalization)
  Sender: FDA-Public Use
  Company Number: US-KINGPHARMUSA00001-K200800983

PATIENT
  Sex: Female

DRUGS (2)
  1. AVINZA [Suspect]
     Dosage: 60 MG, QD
     Route: 048
     Dates: start: 20080401, end: 20080501
  2. AVINZA [Suspect]
     Dosage: 60 MG, QD
     Route: 048
     Dates: start: 20080501

REACTIONS (2)
  - DEHYDRATION [None]
  - VOMITING [None]
